FAERS Safety Report 4474238-1 (Version None)
Quarter: 2004Q4

REPORT INFORMATION
  Report Type: 
  Country: None (occurrence: None)
  Receive Date: 20041013
  Receipt Date: 20040927
  Transmission Date: 20050328
  Serious: Yes (Other)
  Sender: FDA-Public Use
  Company Number: 2004-DE-04989GD

PATIENT
  Age: 50 Year
  Sex: Male

DRUGS (6)
  1. PRAMIPEXOLE (PRAMIPEXOLE DIHYDROCHLORIDE) [Suspect]
     Indication: PARKINSON'S DISEASE
     Dosage: 2.1 MG
  2. LEVODOPA+BENSERAZIDE (LEVODOPA W/BENSERAZIDE) [Suspect]
     Indication: PARKINSON'S DISEASE
     Dosage: SEE IMAGE
  3. ENALAPRIL MALEATE [Concomitant]
  4. AMIODARONE HCL [Concomitant]
  5. BETA-METHYL-DIGOXIN (METILDIGOXIN) [Concomitant]
  6. WARFARIN (WARFARIN) [Concomitant]

REACTIONS (6)
  - CARDIO-RESPIRATORY ARREST [None]
  - DERMATITIS BULLOUS [None]
  - DISEASE PROGRESSION [None]
  - EXTRAPYRAMIDAL DISORDER [None]
  - IATROGENIC INJURY [None]
  - SKIN REACTION [None]
